FAERS Safety Report 10803971 (Version 1)
Quarter: 2015Q1

REPORT INFORMATION
  Report Type: Report from Study
  Country: US (occurrence: US)
  Receive Date: 20150217
  Receipt Date: 20150217
  Transmission Date: 20150721
  Serious: Yes (Hospitalization)
  Sender: FDA-Public Use
  Company Number: US-MERCK-1502USA006350

PATIENT
  Age: 76 Year
  Sex: Female
  Weight: 70 kg

DRUGS (19)
  1. INVANZ [Suspect]
     Active Substance: ERTAPENEM SODIUM
     Dosage: UNK
     Route: 065
     Dates: start: 201411, end: 201412
  2. BACTRIM [Concomitant]
     Active Substance: SULFAMETHOXAZOLE\TRIMETHOPRIM
     Dosage: UNK
     Dates: start: 201412
  3. ONDANSETRON HYDROCHLORIDE. [Concomitant]
     Active Substance: ONDANSETRON HYDROCHLORIDE
  4. METOPROLOL [Concomitant]
     Active Substance: METOPROLOL
  5. LANSOPRAZOLE. [Concomitant]
     Active Substance: LANSOPRAZOLE
  6. HYDREA [Concomitant]
     Active Substance: HYDROXYUREA
  7. FLUCONAZOLE. [Concomitant]
     Active Substance: FLUCONAZOLE
     Dosage: UNK
     Dates: start: 20140515
  8. PENICILLIN G [Suspect]
     Active Substance: PENICILLIN G
     Indication: INFECTION PROPHYLAXIS
     Dosage: 250 MG, QD
     Route: 048
     Dates: end: 201412
  9. NORCO [Concomitant]
     Active Substance: ACETAMINOPHEN\HYDROCODONE BITARTRATE
     Dosage: UNK
     Dates: start: 20140724
  10. ZOFRAN [Concomitant]
     Active Substance: ONDANSETRON HYDROCHLORIDE
     Dosage: UNK
     Dates: start: 20140314
  11. ACYCLOVIR. [Concomitant]
     Active Substance: ACYCLOVIR
  12. ASP2215 [Suspect]
     Active Substance: GILTERITINIB
     Indication: ACUTE MYELOID LEUKAEMIA
     Dosage: 120 MG, UNK
     Route: 048
     Dates: start: 20140923
  13. PENICILLIN V [Concomitant]
     Active Substance: PENICILLIN V
     Dosage: UNK
     Dates: start: 20140930
  14. LASIX [Concomitant]
     Active Substance: FUROSEMIDE
  15. CIPRO [Concomitant]
     Active Substance: CIPROFLOXACIN HYDROCHLORIDE
  16. POTASSIUM (UNSPECIFIED) [Concomitant]
     Active Substance: POTASSIUM
  17. DOCUSATE SODIUM. [Concomitant]
     Active Substance: DOCUSATE SODIUM
     Dosage: UNK
     Dates: start: 20140627
  18. LEVOFLOXACIN. [Concomitant]
     Active Substance: LEVOFLOXACIN
  19. PRINIVIL [Concomitant]
     Active Substance: LISINOPRIL
     Route: 048

REACTIONS (11)
  - Blood alkaline phosphatase increased [Unknown]
  - Blood glucose increased [Unknown]
  - Febrile neutropenia [Recovered/Resolved]
  - Anion gap decreased [Unknown]
  - Aspartate aminotransferase increased [Unknown]
  - Blood sodium increased [Unknown]
  - Blood chloride increased [Unknown]
  - Clostridium difficile colitis [Recovered/Resolved]
  - Blood urea increased [Unknown]
  - Blood calcium decreased [Unknown]
  - Blood albumin decreased [Unknown]

NARRATIVE: CASE EVENT DATE: 20141003
